FAERS Safety Report 4440902-3 (Version None)
Quarter: 2004Q3

REPORT INFORMATION
  Report Type: 
  Country: None (occurrence: None)
  Receive Date: 20040728
  Receipt Date: 20040504
  Transmission Date: 20050211
  Serious: No
  Sender: FDA-Public Use
  Company Number: USA040465865

PATIENT
  Age: 64 Year
  Sex: Male
  Weight: 88 kg

DRUGS (6)
  1. STRATTERA [Suspect]
     Indication: ATTENTION DEFICIT/HYPERACTIVITY DISORDER
     Dosage: 40 MG/2 DAY
     Dates: start: 20040429
  2. ZYPREXA [Suspect]
     Indication: SLEEP DISORDER
     Dosage: 5 MG/1 DAY
     Dates: start: 20040421
  3. KLONOPIN [Concomitant]
  4. LAMICTAL [Concomitant]
  5. OXAZEPAM [Concomitant]
  6. WELLBUTRIN [Concomitant]

REACTIONS (9)
  - DIZZINESS [None]
  - DRUG INEFFECTIVE [None]
  - DRY MOUTH [None]
  - HYPOTENSION [None]
  - MUSCLE SPASMS [None]
  - NERVOUSNESS [None]
  - PALLOR [None]
  - RESTLESS LEGS SYNDROME [None]
  - TREMOR [None]
